FAERS Safety Report 5369872-0 (Version None)
Quarter: 2007Q2

REPORT INFORMATION
  Report Type: 
  Country: None (occurrence: None)
  Receive Date: 20070625
  Receipt Date: 20070618
  Transmission Date: 20071010
  Serious: Yes (Disabling)
  Sender: FDA-Public Use
  Company Number: TH-GILEAD-2007-0012192

PATIENT
  Sex: Male
  Weight: 58 kg

DRUGS (2)
  1. ADEFOVIR DIPIVOXIL KIT [Suspect]
     Indication: HEPATITIS B
     Route: 048
     Dates: start: 20060412, end: 20070103
  2. ATORVASTATIN CALCIUM [Concomitant]
     Indication: DYSLIPIDAEMIA
     Route: 048
     Dates: start: 20060307, end: 20070322

REACTIONS (2)
  - DIABETIC NEPHROPATHY [None]
  - INTERCAPILLARY GLOMERULOSCLEROSIS [None]
